FAERS Safety Report 18665264 (Version 1)
Quarter: 2020Q4

REPORT INFORMATION
  Report Type: Spontaneous
  Country: FR (occurrence: FR)
  Receive Date: 20201225
  Receipt Date: 20201225
  Transmission Date: 20210114
  Serious: Yes (Disabling, Other)
  Sender: FDA-Public Use
  Company Number: FR-MYLANLABS-2020M1103962

PATIENT
  Age: 73 Year
  Sex: Male

DRUGS (11)
  1. TAMIFLU [Suspect]
     Active Substance: OSELTAMIVIR PHOSPHATE
     Indication: PRODUCT USED FOR UNKNOWN INDICATION
     Dosage: 75 MILLIGRAM, BID
  2. RINOCLENIL [Suspect]
     Active Substance: BECLOMETHASONE
     Indication: PRODUCT USED FOR UNKNOWN INDICATION
     Dosage: 1 SPRAY IN EACH NOSTRIL 3 TIMES A DAY FOR 7 DAYS
     Dates: start: 20200203
  3. NEBIVOLOL. [Concomitant]
     Active Substance: NEBIVOLOL
     Dosage: 1 TABLET IN THE MORNING FOR 3 MONTHS
  4. DOLIPRANE [Suspect]
     Active Substance: ACETAMINOPHEN
     Indication: PRODUCT USED FOR UNKNOWN INDICATION
     Dosage: 1000 MILLIGRAM, TID
     Dates: start: 20200203
  5. IMPORTAL [Concomitant]
     Active Substance: LACTITOL
     Dosage: 1 SACHET DILUTED IN WATER PER DAY
  6. DOLIPRANE [Concomitant]
     Active Substance: ACETAMINOPHEN
     Dosage: TABLET 1 TO 3 TIMES PER DAY AS NEEDED, SPACING OUT THE CATCHES OF 4 HOURS MINIMUM. MAXIMUM 4 TABLET
  7. LEVOFLOXACIN. [Suspect]
     Active Substance: LEVOFLOXACIN
     Indication: PRODUCT USED FOR UNKNOWN INDICATION
     Dosage: 500 MILLIGRAM, QD
     Dates: start: 20200130
  8. IZALGI [Suspect]
     Active Substance: ACETAMINOPHEN\OPIUM
     Indication: PRODUCT USED FOR UNKNOWN INDICATION
     Dosage: UNK UNK, QD
  9. BRONCHOKOD [Suspect]
     Active Substance: CARBOCYSTEINE
     Dosage: UNK UNK, BID
     Dates: start: 20200203
  10. ASPIRINE PROTECT [Concomitant]
     Active Substance: ASPIRIN
     Dosage: 1 TABLETS IN THE EVENING FOR 3 MONTHS
  11. LIPTRUZET [Concomitant]
     Active Substance: ATORVASTATIN CALCIUM\EZETIMIBE
     Dosage: 1 TABLET ONCE A DAY FOR 3 MONTHS

REACTIONS (2)
  - Pneumonia [Unknown]
  - Tendon rupture [Unknown]
